FAERS Safety Report 5851495-8 (Version None)
Quarter: 2008Q3

REPORT INFORMATION
  Report Type: 
  Country: None (occurrence: None)
  Receive Date: 20080731
  Receipt Date: 20080425
  Transmission Date: 20090109
  Serious: No
  Sender: FDA-Public Use
  Company Number: US200804004651

PATIENT
  Age: 68 Year
  Sex: Female
  Weight: 79.4 kg

DRUGS (14)
  1. BYETTA [Suspect]
     Indication: TYPE 2 DIABETES MELLITUS
     Dosage: 5 UG, 2/D, SUBCUTANEOUS : 15 UG, OTHER, SUBCUTANEOUS
     Route: 058
     Dates: start: 20080424, end: 20080424
  2. BYETTA [Suspect]
     Indication: TYPE 2 DIABETES MELLITUS
     Dosage: 5 UG, 2/D, SUBCUTANEOUS : 15 UG, OTHER, SUBCUTANEOUS
     Route: 058
     Dates: start: 20080409
  3. URSODIOL [Concomitant]
  4. LIPITOR (ATORAVASTATIN CALCIUM) [Concomitant]
  5. ADVAIR DISKUS (FLUTICASONE PROPIONATE, SALMETEROL XINAFOATE) [Concomitant]
  6. DEMADEX [Concomitant]
  7. ASPIRIN [Concomitant]
  8. PRILOSEC [Concomitant]
  9. XANAX [Concomitant]
  10. GLUCOSAMINE W/CHONDROITIN (CHONDROITIN SULFATE, GLUCOSAMINE) [Concomitant]
  11. CHLOR-TRIMETON [Concomitant]
  12. FISH OIL (FISH OIL) [Concomitant]
  13. VITAMIN B COMPLEX CAP [Concomitant]
  14. ALTACE [Concomitant]

REACTIONS (10)
  - BLOOD GLUCOSE DECREASED [None]
  - DIZZINESS [None]
  - FATIGUE [None]
  - FEELING COLD [None]
  - GAIT DISTURBANCE [None]
  - HUNGER [None]
  - INCORRECT DOSE ADMINISTERED [None]
  - INJECTION SITE ERYTHEMA [None]
  - INJECTION SITE HAEMATOMA [None]
  - WEIGHT DECREASED [None]
